FAERS Safety Report 15650209 (Version 2)
Quarter: 2019Q1

REPORT INFORMATION
  Report Type: Report from Study
  Country: US (occurrence: US)
  Receive Date: 20181123
  Receipt Date: 20190312
  Transmission Date: 20190417
  Serious: No
  Sender: FDA-Public Use
  Company Number: PHEH2018US049713

PATIENT
  Sex: Female

DRUGS (1)
  1. COSENTYX [Suspect]
     Active Substance: SECUKINUMAB
     Indication: PSORIATIC ARTHROPATHY
     Dosage: 300 MG, Q2W
     Route: 058
     Dates: start: 20181116

REACTIONS (2)
  - Incorrect product administration duration [Unknown]
  - Syringe issue [Unknown]
